FAERS Safety Report 11789328 (Version 1)
Quarter: 2015Q4

REPORT INFORMATION
  Report Type: Report from Study
  Country: JP (occurrence: JP)
  Receive Date: 20151201
  Receipt Date: 20151201
  Transmission Date: 20160305
  Serious: Yes (Death, Life-Threatening)
  Sender: FDA-Public Use
  Company Number: JP-SA-THYM-1003585

PATIENT
  Age: 16 Year
  Sex: Male
  Weight: 47.1 kg

DRUGS (11)
  1. VFEND [Suspect]
     Active Substance: VORICONAZOLE
     Indication: ENDOCARDITIS
     Route: 065
     Dates: start: 20120110, end: 20120213
  2. VFEND [Suspect]
     Active Substance: VORICONAZOLE
     Indication: ENDOCARDITIS
     Route: 065
     Dates: start: 20120427, end: 20120501
  3. SANDIMMUN [Suspect]
     Active Substance: CYCLOSPORINE
     Indication: APLASTIC ANAEMIA
     Route: 065
     Dates: start: 20111018, end: 20120329
  4. VFEND [Suspect]
     Active Substance: VORICONAZOLE
     Indication: FUNGAL INFECTION
     Route: 065
     Dates: start: 20120110, end: 20120213
  5. GASTER [Concomitant]
     Active Substance: FAMOTIDINE
     Indication: GASTRITIS
     Dates: start: 20120302
  6. THYMOGLOBULINE [Suspect]
     Active Substance: LAPINE T-LYMPHOCYTE IMMUNE GLOBULIN
     Indication: APLASTIC ANAEMIA
     Dosage: UNK
     Route: 042
     Dates: start: 20111107, end: 20111111
  7. PRIDOL [Suspect]
     Active Substance: METHYLPREDNISOLONE SODIUM SUCCINATE
     Indication: ALLERGY PROPHYLAXIS
     Route: 065
     Dates: start: 20111107, end: 20111113
  8. VFEND [Suspect]
     Active Substance: VORICONAZOLE
     Indication: ENDOCARDITIS
     Route: 065
     Dates: start: 20111125, end: 20111201
  9. GRAN [Concomitant]
     Active Substance: FILGRASTIM
     Indication: APLASTIC ANAEMIA
     Dates: start: 20111018, end: 20120206
  10. VFEND [Suspect]
     Active Substance: VORICONAZOLE
     Indication: FUNGAL INFECTION
     Route: 065
     Dates: start: 20111125, end: 20111201
  11. VFEND [Suspect]
     Active Substance: VORICONAZOLE
     Indication: FUNGAL INFECTION
     Route: 065
     Dates: start: 20120427, end: 20120501

REACTIONS (13)
  - Endocarditis [Recovered/Resolved]
  - Herpes zoster [Recovered/Resolved]
  - Febrile neutropenia [Recovered/Resolved]
  - Febrile neutropenia [Recovered/Resolved]
  - Fungal infection [Recovered/Resolved]
  - Febrile neutropenia [Recovered/Resolved]
  - Fungal infection [Recovered/Resolved]
  - Renal disorder [Recovered/Resolved]
  - Febrile neutropenia [Fatal]
  - Febrile neutropenia [Recovered/Resolved]
  - Febrile neutropenia [Recovered/Resolved]
  - Cerebral haemorrhage [Recovered/Resolved]
  - Osteonecrosis [Recovered/Resolved]

NARRATIVE: CASE EVENT DATE: 20111024
